FAERS Safety Report 15276198 (Version 4)
Quarter: 2018Q3

REPORT INFORMATION
  Report Type: Report from Study
  Country: BR (occurrence: BR)
  Receive Date: 20180814
  Receipt Date: 20180928
  Transmission Date: 20181010
  Serious: Yes (Other)
  Sender: FDA-Public Use
  Company Number: PHHY2018BR065270

PATIENT
  Age: 63 Year
  Sex: Male
  Weight: 64 kg

DRUGS (5)
  1. LOTAR [Concomitant]
     Active Substance: AMLODIPINE\LOSARTAN
     Indication: BLOOD PRESSURE INCREASED
     Dosage: 2 DF, QD, STARTED 2 YEAR AGO
     Route: 048
  2. VOTRIENT [Suspect]
     Active Substance: PAZOPANIB HYDROCHLORIDE
     Indication: METASTATIC RENAL CELL CARCINOMA
  3. VOTRIENT [Suspect]
     Active Substance: PAZOPANIB HYDROCHLORIDE
     Indication: HEPATIC CANCER
     Dosage: 800 MG, QD
     Route: 048
     Dates: start: 20180723, end: 20180809
  4. VOTRIENT [Suspect]
     Active Substance: PAZOPANIB HYDROCHLORIDE
     Indication: LUNG NEOPLASM MALIGNANT
     Dosage: 800 MG, QD
     Route: 048
     Dates: start: 20180820
  5. VOTRIENT [Suspect]
     Active Substance: PAZOPANIB HYDROCHLORIDE
     Indication: RENAL CANCER
     Dosage: 2 DF, QD
     Route: 048
     Dates: start: 20180718

REACTIONS (18)
  - Fall [Recovered/Resolved]
  - Vomiting [Recovered/Resolved]
  - Epistaxis [Unknown]
  - Weight increased [Unknown]
  - Oropharyngeal pain [Unknown]
  - Vomiting [Recovered/Resolved]
  - Injury [Recovering/Resolving]
  - Dysgeusia [Unknown]
  - Epistaxis [Recovered/Resolved]
  - Asthenia [Recovering/Resolving]
  - Haematemesis [Recovering/Resolving]
  - Eating disorder [Recovering/Resolving]
  - Feeling abnormal [Unknown]
  - Diarrhoea [Recovered/Resolved]
  - Haematochezia [Recovering/Resolving]
  - Malaise [Unknown]
  - Dysphagia [Unknown]
  - Dizziness [Recovered/Resolved]

NARRATIVE: CASE EVENT DATE: 201808
